FAERS Safety Report 11219636 (Version 2)
Quarter: 2015Q3

REPORT INFORMATION
  Report Type: Spontaneous
  Country: US (occurrence: US)
  Receive Date: 20150625
  Receipt Date: 20150724
  Transmission Date: 20151125
  Serious: Yes (Life-Threatening, Hospitalization)
  Sender: FDA-Public Use
  Company Number: US-BAYER-2015-365245

PATIENT
  Age: 67 Year
  Sex: Female

DRUGS (2)
  1. GADAVIST [Suspect]
     Active Substance: GADOBUTROL
     Indication: NUCLEAR MAGNETIC RESONANCE IMAGING BRAIN
     Dosage: 7.5 ML, ONCE
     Route: 042
     Dates: start: 20150618, end: 20150618
  2. GADAVIST [Suspect]
     Active Substance: GADOBUTROL
     Indication: CENTRAL NERVOUS SYSTEM LESION

REACTIONS (6)
  - Seizure like phenomena [None]
  - Dyspnoea [None]
  - Hyperhidrosis [None]
  - Blood pressure decreased [None]
  - Erythema [None]
  - Anaphylactic reaction [None]

NARRATIVE: CASE EVENT DATE: 20150618
